FAERS Safety Report 25062557 (Version 2)
Quarter: 2025Q2

REPORT INFORMATION
  Report Type: Report from Study
  Country: PT (occurrence: PT)
  Receive Date: 20250311
  Receipt Date: 20250519
  Transmission Date: 20250717
  Serious: Yes (Death)
  Sender: CSL BEHRING
  Company Number: PT-BEH-2025196792

PATIENT
  Age: 84 Year
  Sex: Male

DRUGS (4)
  1. VELTASSA [Suspect]
     Active Substance: PATIROMER
     Indication: Hyperkalaemia
     Route: 065
     Dates: start: 20230724, end: 20240501
  2. RAMIPRIL [Concomitant]
     Active Substance: RAMIPRIL
  3. DAPAGLIFLOZIN [Concomitant]
     Active Substance: DAPAGLIFLOZIN
  4. FUROSEMIDE [Concomitant]
     Active Substance: FUROSEMIDE

REACTIONS (6)
  - Acute kidney injury [Fatal]
  - Oliguria [Fatal]
  - Respiratory tract infection [Fatal]
  - Cardiorenal syndrome [Fatal]
  - Cardiac failure acute [Fatal]
  - Cardiac arrest [Fatal]

NARRATIVE: CASE EVENT DATE: 20240406
